FAERS Safety Report 7047899-0 (Version None)
Quarter: 2010Q4

REPORT INFORMATION
  Report Type: 
  Country: None (occurrence: None)
  Receive Date: 20101014
  Receipt Date: 20101014
  Transmission Date: 20110411
  Serious: Yes (Hospitalization, Other)
  Sender: FDA-Public Use
  Company Number: None

PATIENT
  Age: 78 Year
  Sex: Male
  Weight: 89.4 kg

DRUGS (2)
  1. TOBRAMYCIN [Suspect]
     Indication: PNEUMONIA
     Dosage: 400 MG OTHER IV
     Route: 042
     Dates: start: 20100830, end: 20100911
  2. VANCOMYCIN [Suspect]
     Indication: PNEUMONIA
     Dosage: 1750 MG OTHER IV
     Route: 042
     Dates: start: 20100830, end: 20100912

REACTIONS (1)
  - RENAL FAILURE ACUTE [None]
